FAERS Safety Report 6601496-7 (Version None)
Quarter: 2010Q1

REPORT INFORMATION
  Report Type: 
  Country: None (occurrence: None)
  Receive Date: 20100225
  Receipt Date: 20100216
  Transmission Date: 20100710
  Serious: Yes (Hospitalization)
  Sender: FDA-Public Use
  Company Number: CR-B.I. PHARMACEUTICALS,INC./RIDGEFIELD-2010-MX-00024MX

PATIENT
  Age: 68 Year
  Sex: Female
  Weight: 65 kg

DRUGS (1)
  1. SECOTEX [Suspect]
     Indication: URINARY TRACT OBSTRUCTION
     Dosage: 0.4 MG
     Route: 048
     Dates: start: 20090722, end: 20090801

REACTIONS (4)
  - CONFUSIONAL STATE [None]
  - DRUG ADMINISTRATION ERROR [None]
  - HYPOTENSION [None]
  - SYNCOPE [None]
